FAERS Safety Report 9767508 (Version 1)
Quarter: 2013Q4

REPORT INFORMATION
  Report Type: Spontaneous
  Country: BR (occurrence: BR)
  Receive Date: 20131217
  Receipt Date: 20131217
  Transmission Date: 20140711
  Serious: Yes (Hospitalization, Other)
  Sender: FDA-Public Use
  Company Number: PHHY2013BR147090

PATIENT
  Age: 72 Year
  Sex: Female
  Weight: 69 kg

DRUGS (14)
  1. TEGRETOL [Suspect]
     Indication: DIABETIC NEUROPATHY
     Dosage: 2 DF, DAILY
     Route: 048
  2. TEGRETOL [Suspect]
     Indication: SPINAL PAIN
  3. TEGRETOL [Suspect]
     Indication: PAIN IN EXTREMITY
  4. FLUOXETINE [Concomitant]
     Indication: DEPRESSION
     Dosage: 1 DF, DAILY
     Route: 048
  5. INSULIN [Concomitant]
     Indication: DIABETES MELLITUS
     Dosage: UNK UKN, PRN
  6. METFORMIN [Concomitant]
     Dosage: 1 DF, DAILY
     Route: 048
  7. FUROSEMIDE [Concomitant]
     Dosage: 1 DF, DAILY
     Route: 048
  8. SPIRONOLACTONE [Concomitant]
     Dosage: 1 DF, DAILY
     Route: 048
  9. MOTILIUM ^JANSSEN-CILAG^ [Concomitant]
     Dosage: 3 DF, DAILY
     Route: 048
  10. DIGOXIN [Concomitant]
     Dosage: 1 DF, DAILY
  11. THIOCTIC ACID MERCK HOEI [Concomitant]
     Indication: DIABETIC NEUROPATHY
     Dosage: 1 DF, DAILY
     Route: 048
  12. TRAMADOL [Concomitant]
     Indication: SPINAL PAIN
     Dosage: 3 DF, DAILY
     Route: 048
  13. TRAMADOL [Concomitant]
     Indication: PAIN IN EXTREMITY
  14. MAREVAN [Concomitant]
     Indication: ANTICOAGULANT THERAPY
     Dosage: 0.5 DF, DAILY

REACTIONS (7)
  - Renal disorder [Not Recovered/Not Resolved]
  - Bladder cancer [Not Recovered/Not Resolved]
  - Gastritis [Not Recovered/Not Resolved]
  - Nausea [Not Recovered/Not Resolved]
  - Vomiting [Not Recovered/Not Resolved]
  - Asthenia [Not Recovered/Not Resolved]
  - Decreased appetite [Not Recovered/Not Resolved]
